FAERS Safety Report 23154209 (Version 1)
Quarter: 2023Q4

REPORT INFORMATION
  Report Type: Spontaneous
  Country: IT (occurrence: IT)
  Receive Date: 20231107
  Receipt Date: 20231107
  Transmission Date: 20240109
  Serious: Yes (Other)
  Sender: FDA-Public Use
  Company Number: IT-SUN PHARMACEUTICAL INDUSTRIES LTD-2023RR-416654

PATIENT
  Age: 59 Year
  Sex: Male

DRUGS (5)
  1. IMATINIB [Suspect]
     Active Substance: IMATINIB
     Indication: Chronic myeloid leukaemia
     Dosage: 400 MILLIGRAM, DAILY
     Route: 065
  2. DASATINIB [Suspect]
     Active Substance: DASATINIB
     Indication: Chronic myeloid leukaemia
     Dosage: 100 MILLIGRAM, DAILY
     Route: 065
     Dates: start: 2008
  3. NILOTINIB [Suspect]
     Active Substance: NILOTINIB
     Indication: Chronic myeloid leukaemia
     Dosage: 800 MILLIGRAM, DAILY
     Route: 065
     Dates: start: 2012, end: 2016
  4. NILOTINIB [Suspect]
     Active Substance: NILOTINIB
     Dosage: 400 MILLIGRAM, DAILY
     Route: 065
     Dates: start: 201602
  5. BOSUTINIB [Suspect]
     Active Substance: BOSUTINIB
     Indication: Chronic myeloid leukaemia
     Dosage: 500 MILLIGRAM, DAILY
     Route: 065
     Dates: start: 201610, end: 201806

REACTIONS (4)
  - Therapeutic product effect incomplete [Unknown]
  - Cerebrovascular accident [Recovering/Resolving]
  - Hepatotoxicity [Recovering/Resolving]
  - Drug ineffective [Unknown]
